FAERS Safety Report 21976876 (Version 2)
Quarter: 2023Q1

REPORT INFORMATION
  Report Type: Spontaneous
  Country: CA (occurrence: CA)
  Receive Date: 20230210
  Receipt Date: 20230221
  Transmission Date: 20230418
  Serious: Yes (Hospitalization)
  Sender: FDA-Public Use
  Company Number: CA-BAXTER-2023BAX012105

PATIENT
  Age: 31 Year
  Sex: Female

DRUGS (1)
  1. ACETAMINOPHEN [Suspect]
     Active Substance: ACETAMINOPHEN
     Indication: Drug provocation test
     Dosage: INITIAL DOSE OF 60 MG
     Route: 065

REACTIONS (8)
  - Drug hypersensitivity [Unknown]
  - Lip swelling [Unknown]
  - Lip pruritus [Unknown]
  - Swelling face [Unknown]
  - Syncope [Unknown]
  - Rash [Unknown]
  - Pyrexia [Unknown]
  - Blood pressure decreased [Unknown]
